FAERS Safety Report 6747771-7 (Version None)
Quarter: 2010Q2

REPORT INFORMATION
  Report Type: 
  Country: None (occurrence: None)
  Receive Date: 20100528
  Receipt Date: 20100517
  Transmission Date: 20101027
  Serious: Yes (Hospitalization)
  Sender: FDA-Public Use
  Company Number: US-ELI_LILLY_AND_COMPANY-US201004003963

PATIENT
  Sex: Female
  Weight: 74.376 kg

DRUGS (13)
  1. BYETTA [Suspect]
     Indication: TYPE 2 DIABETES MELLITUS
     Dosage: 5 UG, 2/D
     Dates: start: 20080901, end: 20100410
  2. ENTERIC ASPIRIN [Concomitant]
     Dosage: 81 MG, DAILY (1/D)
     Route: 048
  3. LASIX [Concomitant]
     Dosage: 40 MG, DAILY (1/D)
     Route: 048
  4. DIOVAN [Concomitant]
     Dosage: 160 MG, DAILY (1/D)
     Route: 048
  5. COUMADIN [Concomitant]
     Dosage: 4 MG, DAILY (1/D)
     Route: 048
  6. LEVAQUIN [Concomitant]
     Dosage: 500 MG, AS NEEDED
     Route: 048
  7. MULTI-VITAMIN [Concomitant]
  8. CELEXA [Concomitant]
     Dosage: 10 MG, DAILY (1/D)
  9. EXFORGE                            /01634301/ [Concomitant]
  10. PRILOSEC [Concomitant]
     Dosage: 20 MG, DAILY (1/D)
  11. COLACE [Concomitant]
     Dosage: UNK, 2/D
  12. AMBIEN [Concomitant]
     Dosage: 10 MG, EACH EVENING
  13. TYLENOL (CAPLET) [Concomitant]

REACTIONS (3)
  - CHOLELITHIASIS [None]
  - CONSTIPATION [None]
  - PANCREATITIS [None]
